FAERS Safety Report 18118283 (Version 3)
Quarter: 2021Q4

REPORT INFORMATION
  Report Type: Spontaneous
  Country: US (occurrence: US)
  Receive Date: 20200806
  Receipt Date: 20211103
  Transmission Date: 20220303
  Serious: No
  Sender: FDA-Public Use
  Company Number: US-SA-2020SA200871

PATIENT
  Age: 58 Year
  Sex: Female

DRUGS (7)
  1. AUBAGIO [Suspect]
     Active Substance: TERIFLUNOMIDE
     Indication: Multiple sclerosis
     Dosage: 14 MG, QD
     Route: 048
     Dates: start: 2015
  2. AMPYRA [Suspect]
     Active Substance: DALFAMPRIDINE
     Dosage: UNK UNK, BID (8 AM AND 8 PM)
     Route: 065
     Dates: start: 20200810
  3. DALFAMPRIDINE [Concomitant]
     Active Substance: DALFAMPRIDINE
  4. PROVIGIL [Concomitant]
     Active Substance: MODAFINIL
  5. TOVIAZ [Concomitant]
     Active Substance: FESOTERODINE FUMARATE
  6. VITAMIN D NOS [Concomitant]
     Active Substance: VITAMIN D NOS
  7. MULTIVITAMIN [ASCORBIC ACID;BIOTIN;FOLIC ACID;NICOTINIC ACID;PANTOTHEN [Concomitant]

REACTIONS (5)
  - Fatigue [Unknown]
  - Bladder disorder [Unknown]
  - Decreased appetite [Unknown]
  - Insomnia [Unknown]
  - Diarrhoea [Unknown]

NARRATIVE: CASE EVENT DATE: 20200811
